FAERS Safety Report 13082210 (Version 1)
Quarter: 2017Q1

REPORT INFORMATION
  Report Type: Spontaneous
  Country: US (occurrence: US)
  Receive Date: 20170103
  Receipt Date: 20170103
  Transmission Date: 20170428
  Serious: No
  Sender: FDA-Public Use
  Company Number: US-BAYER-2016-245520

PATIENT
  Age: 5 Year
  Sex: Male

DRUGS (1)
  1. KOGENATE FS [Suspect]
     Active Substance: ANTIHEMOPHILIC FACTOR, HUMAN RECOMBINANT
     Dosage: 500 IU THREE TIMES PER WEEK
     Route: 042
     Dates: start: 20161204

REACTIONS (3)
  - Pyrexia [None]
  - Mass [Recovering/Resolving]
  - Head injury [Recovered/Resolved]
